FAERS Safety Report 23932727 (Version 1)
Quarter: 2024Q2

REPORT INFORMATION
  Report Type: Spontaneous
  Country: US (occurrence: None)
  Receive Date: 20240601
  Receipt Date: 20240601
  Transmission Date: 20240715
  Serious: Yes (Disabling, Other)
  Sender: FDA-Public Use
  Company Number: None

PATIENT
  Age: 61 Year
  Sex: Female
  Weight: 85.5 kg

DRUGS (1)
  1. NORSPAN [Suspect]
     Active Substance: BUPRENORPHINE
     Indication: Pain
     Dosage: OTHER QUANTITY : 1 PATCH(ES);?FREQUENCY : AS NEEDED;?
     Route: 061

REACTIONS (6)
  - Tooth fracture [None]
  - Infective glossitis [None]
  - Sinusitis [None]
  - Ear infection [None]
  - Mouth injury [None]
  - Tongue injury [None]

NARRATIVE: CASE EVENT DATE: 20240520
